FAERS Safety Report 23992331 (Version 2)
Quarter: 2024Q2

REPORT INFORMATION
  Report Type: Report from Study
  Country: CH (occurrence: CH)
  Receive Date: 20240620
  Receipt Date: 20240624
  Transmission Date: 20240716
  Serious: Yes (Hospitalization, Other)
  Sender: FDA-Public Use
  Company Number: CH-ABBVIE-5800708

PATIENT
  Age: 75 Year
  Sex: Female
  Weight: 58 kg

DRUGS (30)
  1. SKYRIZI [Suspect]
     Active Substance: RISANKIZUMAB-RZAA
     Indication: Psoriasis
     Route: 058
     Dates: start: 20220218
  2. SKYRIZI [Suspect]
     Active Substance: RISANKIZUMAB-RZAA
     Route: 058
  3. ACTIVATED CHARCOAL\DIMETHICONE [Concomitant]
     Active Substance: ACTIVATED CHARCOAL\DIMETHICONE
     Indication: Product used for unknown indication
     Dosage: 1 PIECE EACH?42 MG?FREQUENCY TEXT: EVERY MORNING AND EVENING
     Route: 048
  4. NIZORAL [Concomitant]
     Active Substance: KETOCONAZOLE
     Indication: Product used for unknown indication
     Dates: start: 201510
  5. MAGNESIUM ASPARTATE HYDROCHLORIDE [Concomitant]
     Active Substance: MAGNESIUM ASPARTATE HYDROCHLORIDE
     Indication: Product used for unknown indication
     Dosage: 1 PIECE?FREQUENCY TEXT: EVERY MORNING
     Route: 048
  6. DICLOFENAC DIETHYLAMINE [Concomitant]
     Active Substance: DICLOFENAC DIETHYLAMINE
     Indication: Product used for unknown indication
     Dosage: FREQUENCY TEXT: IF NEEDED?1%
  7. Novalgin [Concomitant]
     Indication: Pain
     Dosage: FREQUENCY TEXT: IF NEEDED?500 MG
     Route: 048
  8. MACROGOLUM 3350 [Concomitant]
     Indication: Diverticulum
     Dosage: 1 PIECE?FREQUENCY TEXT: EVERY MORNING AND NOON
  9. Procto glyvenol [Concomitant]
     Indication: Product used for unknown indication
     Dosage: 5 % CREAM?FREQUENCY TEXT: 1-2X PER DAY
  10. CLOBETASOL PROPIONATE [Concomitant]
     Active Substance: CLOBETASOL PROPIONATE
     Indication: Product used for unknown indication
     Dates: start: 201510
  11. CLOBETASOL PROPIONATE [Concomitant]
     Active Substance: CLOBETASOL PROPIONATE
     Indication: Product used for unknown indication
     Dates: start: 201805
  12. CHONDROITINI SULFAS NATRICUS [Concomitant]
     Indication: Product used for unknown indication
     Dosage: 1 PIECE?400 MG?FREQUENCY TEXT: EVERY EVENING
     Route: 048
  13. PANTOPRAZOLE SODIUM [Concomitant]
     Active Substance: PANTOPRAZOLE SODIUM
     Indication: Product used for unknown indication
     Dosage: 40 MG?FREQUENCY TEXT: IF NEEDED
  14. PROTOPIC [Concomitant]
     Active Substance: TACROLIMUS
     Indication: Product used for unknown indication
     Dates: start: 201510
  15. PROTOPIC [Concomitant]
     Active Substance: TACROLIMUS
     Indication: Product used for unknown indication
     Dates: start: 20160422
  16. BETAMETHASONE DIPROPIONATE\CALCIPOTRIENE HYDRATE [Concomitant]
     Active Substance: BETAMETHASONE DIPROPIONATE\CALCIPOTRIENE HYDRATE
     Indication: Product used for unknown indication
     Dates: start: 20160422
  17. SQUA-MED [Concomitant]
     Indication: Product used for unknown indication
     Dates: start: 20160422
  18. Redormin [Concomitant]
     Indication: Product used for unknown indication
     Dosage: 250 MG?FREQUENCY TEXT: IF NEEDED
  19. DAIVOBET [Concomitant]
     Active Substance: BETAMETHASONE DIPROPIONATE\CALCIPOTRIENE
     Indication: Product used for unknown indication
     Dates: start: 201805
  20. DAIVOBET [Concomitant]
     Active Substance: BETAMETHASONE DIPROPIONATE\CALCIPOTRIENE
     Indication: Product used for unknown indication
     Dates: start: 201705
  21. DAIVOBET [Concomitant]
     Active Substance: BETAMETHASONE DIPROPIONATE\CALCIPOTRIENE
     Indication: Product used for unknown indication
     Dates: start: 20160422
  22. SICORTEN PLUS [Concomitant]
     Indication: Product used for unknown indication
     Dates: start: 201510
  23. VITAMIN D3 [Concomitant]
     Active Substance: CHOLECALCIFEROL
     Indication: Product used for unknown indication
     Dosage: 15 DROPS?4500IU/ML, 100UI/DROP?FREQUENCY TEXT: EVERY OTHER DAY
  24. Calcimagon D3 Forte [Concomitant]
     Indication: Product used for unknown indication
     Dosage: 1 PIECE (1000MG, 800IU)?FREQUENCY TEXT: EVERY MORNING
     Route: 048
  25. BONVIVA [Concomitant]
     Active Substance: IBANDRONATE SODIUM
     Indication: Product used for unknown indication
     Dosage: FREQUENCY TEXT: MONTHLY
     Dates: end: 2018
  26. ESOMEPRAZOLE [Concomitant]
     Active Substance: ESOMEPRAZOLE
     Indication: Product used for unknown indication
     Dosage: 1 PIECE?FREQUENCY TEXT: EVERY MORNING?MUPS 40MG
     Route: 048
  27. ACTONEL [Concomitant]
     Active Substance: RISEDRONATE SODIUM
     Indication: Product used for unknown indication
     Dosage: 1 PIECE?35 MG?FREQUENCY TEXT: EVERY MORNING
     Dates: start: 202301
  28. ASPIRIN [Concomitant]
     Active Substance: ASPIRIN
     Indication: Product used for unknown indication
     Dosage: 1 PIECE?ASPIRIN CARDIO 100MG?FREQUENCY TEXT: EVERY MORNING
     Route: 048
  29. Bepanthen [Concomitant]
     Indication: Product used for unknown indication
     Dosage: 50MG/G?FREQUENCY TEXT: EVERY MORNING
  30. Burgerstein omega 3 epa [Concomitant]
     Indication: Product used for unknown indication
     Dosage: 1 PIECE?FREQUENCY TEXT: EVERY MORNING
     Route: 048

REACTIONS (32)
  - Diverticulum intestinal haemorrhagic [Recovered/Resolved]
  - Angina pectoris [Unknown]
  - Melaena [Unknown]
  - Left atrial dilatation [Unknown]
  - Arthralgia [Unknown]
  - Diverticulum intestinal [Not Recovered/Not Resolved]
  - Polyarthritis [Unknown]
  - Mitral valve thickening [Unknown]
  - Iron deficiency [Unknown]
  - Haematochezia [Unknown]
  - Arthropathy [Unknown]
  - Intraductal proliferative breast lesion [Not Recovered/Not Resolved]
  - Cardiac aneurysm [Unknown]
  - Aortic wall hypertrophy [Unknown]
  - Haemoglobin decreased [Unknown]
  - Glucose tolerance impaired [Unknown]
  - Hypokalaemia [Unknown]
  - Joint dislocation [Unknown]
  - Muscle disorder [Unknown]
  - Dyspnoea exertional [Unknown]
  - Right-to-left cardiac shunt [Unknown]
  - Anal haemorrhage [Unknown]
  - Colorectal adenoma [Unknown]
  - Vertebral osteophyte [Unknown]
  - Mitral valve incompetence [Unknown]
  - Spinal disorder [Unknown]
  - Hypercholesterolaemia [Unknown]
  - Non-alcoholic steatohepatitis [Unknown]
  - Post procedural haemorrhage [Unknown]
  - Ulcer [Unknown]
  - Large intestine polyp [Unknown]
  - Spinal pain [Unknown]

NARRATIVE: CASE EVENT DATE: 20220101
